FAERS Safety Report 6159143-7 (Version None)
Quarter: 2009Q2

REPORT INFORMATION
  Report Type: 
  Country: None (occurrence: None)
  Receive Date: 20090417
  Receipt Date: 20090414
  Transmission Date: 20091009
  Serious: Yes (Hospitalization, Other)
  Sender: FDA-Public Use
  Company Number: US-RB-014235-09

PATIENT
  Sex: Male

DRUGS (2)
  1. SUBUTEX [Suspect]
     Route: 064
     Dates: start: 20080930, end: 20090128
  2. SUBUTEX [Suspect]
     Route: 064
     Dates: start: 20090129, end: 20090309

REACTIONS (5)
  - DRUG EXPOSURE DURING PREGNANCY [None]
  - GRUNTING [None]
  - INTERCOSTAL RETRACTION [None]
  - PREMATURE BABY [None]
  - WITHDRAWAL SYNDROME [None]
